FAERS Safety Report 8203627-4 (Version None)
Quarter: 2012Q1

REPORT INFORMATION
  Report Type: 
  Country: None (occurrence: None)
  Receive Date: 20120313
  Receipt Date: 20120229
  Transmission Date: 20120608
  Serious: Yes (Other)
  Sender: FDA-Public Use
  Company Number: BR-AMGEN-BRASP2012014191

PATIENT
  Age: 32 Year
  Sex: Female
  Weight: 48 kg

DRUGS (1)
  1. ENBREL [Suspect]
     Indication: ANKYLOSING SPONDYLITIS
     Dosage: 50 MG, ONCE WEEKLY
     Route: 058
     Dates: start: 20110901

REACTIONS (7)
  - SYNCOPE [None]
  - DIZZINESS [None]
  - PAIN [None]
  - VOMITING [None]
  - PARAESTHESIA [None]
  - RETCHING [None]
  - FEELING ABNORMAL [None]
